FAERS Safety Report 13657161 (Version 2)
Quarter: 2018Q2

REPORT INFORMATION
  Report Type: Spontaneous
  Country: CA (occurrence: CA)
  Receive Date: 20170615
  Receipt Date: 20180412
  Transmission Date: 20180711
  Serious: Yes (Other)
  Sender: FDA-Public Use
  Company Number: CA-ALLERGAN-1000059690

PATIENT
  Age: 22 Year
  Sex: Female
  Weight: 70 kg

DRUGS (1)
  1. ASENAPINE MALEATE - BP [Suspect]
     Active Substance: ASENAPINE MALEATE
     Indication: BIPOLAR I DISORDER
     Dosage: 5 MG, BID
     Route: 060
     Dates: start: 20120413

REACTIONS (9)
  - Decreased appetite [Unknown]
  - Hypotension [Unknown]
  - Headache [Unknown]
  - Restlessness [Unknown]
  - Acne [Unknown]
  - Nausea [Unknown]
  - Anxiety [Unknown]
  - Suicidal ideation [Unknown]
  - Dizziness [Unknown]

NARRATIVE: CASE EVENT DATE: 201205
